FAERS Safety Report 18091034 (Version 1)
Quarter: 2020Q3

REPORT INFORMATION
  Report Type: Other
  Country: US (occurrence: US)
  Receive Date: 20200730
  Receipt Date: 20200730
  Transmission Date: 20201103
  Serious: Yes (Hospitalization, Other)
  Sender: FDA-Public Use
  Company Number: US-P+L DEVELOPMENTS OF NEWYORK CORPORATION-2087921

PATIENT
  Age: 35 Year
  Sex: Male

DRUGS (1)
  1. IBUPROFEN. [Suspect]
     Active Substance: IBUPROFEN
     Indication: BACK PAIN
     Route: 065

REACTIONS (8)
  - Loss of personal independence in daily activities [Unknown]
  - Hypophagia [Unknown]
  - Hypokalaemia [Recovered/Resolved]
  - Self-medication [Unknown]
  - Metabolic acidosis [Recovered/Resolved]
  - Electrocardiogram T wave amplitude decreased [Unknown]
  - Abdominal pain [Unknown]
  - Overdose [Unknown]
